FAERS Safety Report 10224680 (Version 2)
Quarter: 2014Q2

REPORT INFORMATION
  Report Type: Spontaneous
  Country: US (occurrence: US)
  Receive Date: 20140609
  Receipt Date: 20140613
  Transmission Date: 20141212
  Serious: No
  Sender: FDA-Public Use
  Company Number: US-PFIZER INC-2014157394

PATIENT
  Sex: Female

DRUGS (3)
  1. ADVIL [Suspect]
     Indication: MUSCLE SWELLING
     Dosage: UNK, AS NEEDED
     Dates: start: 201403
  2. ADVIL [Suspect]
     Indication: INFLAMMATION
  3. ADVIL [Suspect]
     Indication: PAIN

REACTIONS (3)
  - Intentional product misuse [Unknown]
  - Hypersensitivity [Unknown]
  - Alopecia [Unknown]
